FAERS Safety Report 5252081-3 (Version None)
Quarter: 2007Q1

REPORT INFORMATION
  Report Type: 
  Country: None (occurrence: None)
  Receive Date: 20070227
  Receipt Date: 20060821
  Transmission Date: 20070707
  Serious: Yes (Death, Hospitalization)
  Sender: FDA-Public Use
  Company Number: DSA_29406_2007

PATIENT
  Age: 81 Year
  Sex: Male

DRUGS (9)
  1. MONOTILDIEM [Suspect]
     Indication: LUNG INFECTION
     Dosage: 300 MG QD PO
     Route: 048
  2. KARDEGIC /00002703/ [Suspect]
     Dosage: 75 MG QD PO
     Route: 048
  3. NEXIUM [Suspect]
     Dosage: 20 MG QD PO
     Route: 048
  4. NITROGLYCERIN [Suspect]
     Dosage: 10 MG Q DAY TD
  5. LASIX [Suspect]
     Dosage: 1 DF Q DAY PO
     Route: 048
  6. BACTRIM [Suspect]
     Indication: NOCARDIOSIS
     Dosage: 1 DF Q DAY PO
     Route: 048
     Dates: start: 20060110, end: 20060805
  7. TRANXENE [Concomitant]
  8. XATRAL [Concomitant]
  9. PERMIXON [Concomitant]

REACTIONS (2)
  - ACUTE RESPIRATORY FAILURE [None]
  - PSEUDOMONAL SEPSIS [None]
